FAERS Safety Report 24399825 (Version 1)
Quarter: 2024Q4

REPORT INFORMATION
  Report Type: Spontaneous
  Country: GB (occurrence: GB)
  Receive Date: 20241005
  Receipt Date: 20241005
  Transmission Date: 20250114
  Serious: Yes (Other)
  Sender: TEVA
  Company Number: GB-MHRA-TPP10225170C5987946YC1727280126018

PATIENT
  Age: 31 Year
  Sex: Female
  Weight: 44 kg

DRUGS (11)
  1. PROPRANOLOL [Suspect]
     Active Substance: PROPRANOLOL HYDROCHLORIDE
     Indication: Ill-defined disorder
     Route: 048
     Dates: start: 20240925
  2. MEFENAMIC ACID [Concomitant]
     Active Substance: MEFENAMIC ACID
     Indication: Ill-defined disorder
     Dosage: TIME INTERVAL: 0.33333333 DAYS: AT MENSTRUATION,
     Route: 048
     Dates: start: 20240523
  3. ENSURE [Concomitant]
     Active Substance: AMINO ACIDS\DEXTROSE\ELECTROLYTES NOS\SOYBEAN OIL\VITAMINS
     Indication: Ill-defined disorder
     Dosage: USE AS DIRECTED
     Dates: start: 20240509
  4. DIAZEPAM [Concomitant]
     Active Substance: DIAZEPAM
     Indication: Ill-defined disorder
     Dosage: TIME INTERVAL: 0.33333333 DAYS: TAKE 1/2 TO ONE THREE TIMES A DAY WHEN REQUIRED
     Route: 048
     Dates: start: 20240509
  5. DOXYCYCLINE [Concomitant]
     Active Substance: DOXYCYCLINE
     Indication: Ill-defined disorder
     Dosage: TWO NOW THEN ONE DAILY,
     Route: 048
     Dates: start: 20240916, end: 20240923
  6. BECLOMETHASONE DIPROPIONATE [Concomitant]
     Active Substance: BECLOMETHASONE DIPROPIONATE
     Indication: Ill-defined disorder
     Dates: start: 20240523
  7. CROMOLYN SODIUM [Concomitant]
     Active Substance: CROMOLYN SODIUM
     Indication: Seasonal allergy
     Dosage: 1-2 DROPS UP TO 4 TIMES/DAY
     Route: 047
     Dates: start: 20210604
  8. PROMETHAZINE HYDROCHLORIDE [Concomitant]
     Active Substance: PROMETHAZINE HYDROCHLORIDE
     Indication: Ill-defined disorder
     Dosage: ONE AT NIGHT AND ANOTHER CAN BE TAKEN
     Route: 048
     Dates: start: 20240509
  9. ALBUTEROL [Concomitant]
     Active Substance: ALBUTEROL
     Indication: Ill-defined disorder
     Dates: start: 20231002
  10. ZOPICLONE [Concomitant]
     Active Substance: ZOPICLONE
     Indication: Ill-defined disorder
     Dosage: TAKE HALF TO ONE AT NIGHT,
     Route: 048
     Dates: start: 20240821, end: 20240918
  11. CHLORAMPHENICOL [Concomitant]
     Active Substance: CHLORAMPHENICOL
     Indication: Ill-defined disorder
     Dates: start: 20240916, end: 20240923

REACTIONS (1)
  - Dyspnoea [Recovered/Resolved]

NARRATIVE: CASE EVENT DATE: 20240925
